FAERS Safety Report 15377288 (Version 3)
Quarter: 2019Q2

REPORT INFORMATION
  Report Type: Spontaneous
  Country: US (occurrence: US)
  Receive Date: 20180913
  Receipt Date: 20190508
  Transmission Date: 20190711
  Serious: No
  Sender: FDA-Public Use
  Company Number: US-PFIZER INC-2018367846

PATIENT
  Sex: Female
  Weight: 64 kg

DRUGS (1)
  1. GABAPENTIN. [Suspect]
     Active Substance: GABAPENTIN
     Dosage: UNK
     Dates: end: 2017

REACTIONS (2)
  - Peripheral swelling [Not Recovered/Not Resolved]
  - Therapeutic product effect incomplete [Unknown]
